FAERS Safety Report 25057856 (Version 1)
Quarter: 2025Q1

REPORT INFORMATION
  Report Type: Spontaneous
  Country: US (occurrence: US)
  Receive Date: 20250310
  Receipt Date: 20250310
  Transmission Date: 20250408
  Serious: No
  Sender: ELI LILLY AND COMPANY
  Company Number: US-ELI_LILLY_AND_COMPANY-US202503006102

PATIENT
  Sex: Male

DRUGS (8)
  1. MOUNJARO [Suspect]
     Active Substance: TIRZEPATIDE
     Indication: Hepatic enzyme abnormal
     Route: 065
     Dates: start: 202502
  2. MOUNJARO [Suspect]
     Active Substance: TIRZEPATIDE
     Indication: Hepatic enzyme abnormal
     Route: 065
     Dates: start: 202502
  3. MOUNJARO [Suspect]
     Active Substance: TIRZEPATIDE
     Indication: Hepatic enzyme abnormal
     Route: 065
     Dates: start: 202502
  4. MOUNJARO [Suspect]
     Active Substance: TIRZEPATIDE
     Indication: Hepatic enzyme abnormal
     Route: 065
     Dates: start: 202502
  5. MOUNJARO [Suspect]
     Active Substance: TIRZEPATIDE
     Indication: Inflammation
  6. MOUNJARO [Suspect]
     Active Substance: TIRZEPATIDE
     Indication: Inflammation
  7. MOUNJARO [Suspect]
     Active Substance: TIRZEPATIDE
     Indication: Inflammation
  8. MOUNJARO [Suspect]
     Active Substance: TIRZEPATIDE
     Indication: Inflammation

REACTIONS (3)
  - Gastrointestinal disorder [Unknown]
  - Off label use [Unknown]
  - Vomiting [Unknown]
